FAERS Safety Report 6622076-3 (Version None)
Quarter: 2010Q1

REPORT INFORMATION
  Report Type: 
  Country: None (occurrence: None)
  Receive Date: 20100304
  Receipt Date: 20100221
  Transmission Date: 20100710
  Serious: Yes (Other)
  Sender: FDA-Public Use
  Company Number: 2010SP009433

PATIENT
  Age: 32 Year
  Sex: Female
  Weight: 69 kg

DRUGS (4)
  1. IMPLANON [Suspect]
     Indication: CONTRACEPTION
     Dosage: 68 MG; SBDE
     Route: 059
     Dates: start: 20041015
  2. IMPLANON [Suspect]
  3. LEVOTHYROXINE SODIUM [Concomitant]
  4. NOVOTIRAL [Concomitant]

REACTIONS (7)
  - ABORTION SPONTANEOUS [None]
  - BLOOD OESTROGEN DECREASED [None]
  - BLOOD PROLACTIN DECREASED [None]
  - DEVICE DISLOCATION [None]
  - IMPLANT SITE PAIN [None]
  - INFERTILITY FEMALE [None]
  - MEDICAL DEVICE COMPLICATION [None]
